FAERS Safety Report 24531344 (Version 5)
Quarter: 2024Q4

REPORT INFORMATION
  Report Type: Spontaneous
  Country: DE (occurrence: DE)
  Receive Date: 20241022
  Receipt Date: 20241211
  Transmission Date: 20250114
  Serious: Yes (Hospitalization, Other)
  Sender: NOVO NORDISK
  Company Number: DE-NOVOPROD-1299371

PATIENT
  Age: 86 Year
  Sex: Female
  Weight: 77 kg

DRUGS (15)
  1. OZEMPIC [Suspect]
     Active Substance: SEMAGLUTIDE
     Indication: Product used for unknown indication
     Dosage: 1 MG, QW
     Dates: end: 20240920
  2. METFORMIN [Concomitant]
     Active Substance: METFORMIN HYDROCHLORIDE
     Dosage: 1000 MG, QD(1 IN THE MORING, 1/2 AT NOON, 1/2 IN THE EVENING)
  3. ALLOPURINOL [Concomitant]
     Active Substance: ALLOPURINOL
     Dosage: 100 MG, BIW
  4. METOPROLOL [Concomitant]
     Active Substance: METOPROLOL
     Dosage: 47.50 MG, QD)(1/2 IN THE EVENING)
  5. CANDESARTAN [Concomitant]
     Active Substance: CANDESARTAN
     Dosage: 80 MG, QD
  6. CLOPIDOGREL [Concomitant]
     Active Substance: CLOPIDOGREL BISULFATE
     Dosage: 75 MG, QD
  7. SIMVASTATIN [Concomitant]
     Active Substance: SIMVASTATIN
     Dosage: 20 MG, QD
  8. VITAMIN B12 [Concomitant]
     Active Substance: CYANOCOBALAMIN
     Dosage: UNK,ONCE IN THE MORNING
  9. VITAMIN D NOS [Concomitant]
     Active Substance: CHOLECALCIFEROL\ERGOCALCIFEROL
     Dosage: 1000 IU, QD
  10. DIETARY SUPPLEMENT [Concomitant]
     Active Substance: DIETARY SUPPLEMENT
     Dosage: UNK,TID(1-1-1)
  11. PREDNISOLONE [Concomitant]
     Active Substance: PREDNISOLONE
     Dosage: 20 MG(DOSE REDUCTION OF 5 MG EVERY 7 DAYS)
     Dates: start: 20241023
  12. CORTISONE [Concomitant]
     Active Substance: CORTISONE
     Dosage: 30,QW(UNTIS NOT REPORTED)
  13. BUDESONIDE [Concomitant]
     Active Substance: BUDESONIDE
     Dosage: UNK
     Route: 054
  14. MESALAMINE [Concomitant]
     Active Substance: MESALAMINE
     Dosage: UNK
  15. JANUVIA [Concomitant]
     Active Substance: SITAGLIPTIN PHOSPHATE
     Dosage: 100 (UNIT NOT REPORTED), ONCE IN THE MORNING

REACTIONS (6)
  - Intestinal haemorrhage [Not Recovered/Not Resolved]
  - Diarrhoea haemorrhagic [Not Recovered/Not Resolved]
  - Abdominal pain upper [Unknown]
  - Loose tooth [Unknown]
  - Jaw disorder [Unknown]
  - Muscle atrophy [Unknown]
